FAERS Safety Report 4552232-X (Version None)
Quarter: 2004Q4

REPORT INFORMATION
  Report Type: 
  Country: None (occurrence: None)
  Receive Date: 20041217
  Receipt Date: 20040929
  Transmission Date: 20050328
  Serious: No
  Sender: FDA-Public Use
  Company Number: 2004-BP-09027BP

PATIENT
  Age: 76 Year
  Sex: Female

DRUGS (13)
  1. SPIRIVA [Suspect]
     Indication: CHRONIC OBSTRUCTIVE AIRWAYS DISEASE
     Dosage: 18 MCG (18 MCG), IH
     Dates: start: 20040927
  2. SPIRIVA [Suspect]
  3. NEURONTIN [Concomitant]
  4. LASIX [Concomitant]
  5. PLAVIX [Concomitant]
  6. HYDROCODONE BITARTRATE + ACETAMINOPHEN [Concomitant]
  7. FOLIC ACID [Concomitant]
  8. VIOXX [Concomitant]
  9. POTCHLORIDE [Concomitant]
  10. ACETYLSALICYLIC ACID SRT [Concomitant]
  11. PRAVACHOL [Concomitant]
  12. ZETIA [Concomitant]
  13. NORVASC [Concomitant]

REACTIONS (1)
  - VOMITING [None]
